FAERS Safety Report 5055985-X (Version None)
Quarter: 2006Q3

REPORT INFORMATION
  Report Type: 
  Country: None (occurrence: None)
  Receive Date: 20060720
  Receipt Date: 20060622
  Transmission Date: 20061208
  Serious: Yes (Hospitalization)
  Sender: FDA-Public Use
  Company Number: PHRM2006FR01954

PATIENT
  Age: 65 Year
  Sex: Female

DRUGS (8)
  1. STALEVO 100 [Suspect]
     Indication: PARKINSON'S DISEASE
     Dosage: 200/150/37.5 X4/DAY
     Route: 048
     Dates: start: 20050614, end: 20060623
  2. SINEMET [Concomitant]
  3. MANTADIX [Concomitant]
  4. EFFEXOR [Concomitant]
  5. TRIVASTAL [Concomitant]
  6. SIFROL [Concomitant]
  7. MOTILIUM [Concomitant]
  8. NEURONTIN [Concomitant]

REACTIONS (3)
  - FALL [None]
  - HAEMOGLOBIN DECREASED [None]
  - IRON DEFICIENCY ANAEMIA [None]
